FAERS Safety Report 9154082 (Version 1)
Quarter: 2013Q1

REPORT INFORMATION
  Report Type: Other
  Country: CO (occurrence: CO)
  Receive Date: 20130311
  Receipt Date: 20130311
  Transmission Date: 20140127
  Serious: Yes (Hospitalization)
  Sender: FDA-Public Use
  Company Number: CO-BRISTOL-MYERS SQUIBB COMPANY-1026598

PATIENT
  Age: 35 Year
  Sex: Female

DRUGS (1)
  1. AMPICILLIN [Suspect]
     Indication: NASOPHARYNGITIS
     Route: 048

REACTIONS (3)
  - Cholestasis [Recovered/Resolved]
  - Aplasia pure red cell [Recovering/Resolving]
  - Stevens-Johnson syndrome [Unknown]
